FAERS Safety Report 6147354-6 (Version None)
Quarter: 2009Q2

REPORT INFORMATION
  Report Type: 
  Country: None (occurrence: None)
  Receive Date: 20090408
  Receipt Date: 20090401
  Transmission Date: 20091009
  Serious: Yes (Other)
  Sender: FDA-Public Use
  Company Number: PHEH2009US03404

PATIENT
  Age: 40 Year
  Sex: Female

DRUGS (2)
  1. ZOMETA [Suspect]
     Indication: RESORPTION BONE INCREASED
     Dosage: 4 MG EVERY 6 MONTHS FOR THREE DOSES
     Route: 042
  2. FEMARA [Concomitant]
     Dosage: 1 TAB DAILY

REACTIONS (1)
  - OSTEONECROSIS [None]
